FAERS Safety Report 13495425 (Version 1)
Quarter: 2017Q2

REPORT INFORMATION
  Report Type: Spontaneous
  Country: US (occurrence: US)
  Receive Date: 20170427
  Receipt Date: 20170427
  Transmission Date: 20170830
  Serious: Yes (Hospitalization)
  Sender: FDA-Public Use
  Company Number: None

PATIENT
  Age: 56 Year
  Sex: Female
  Weight: 100.2 kg

DRUGS (4)
  1. OXALIPLATIN. [Suspect]
     Active Substance: OXALIPLATIN
  2. LEUCOVORIN. [Suspect]
     Active Substance: LEUCOVORIN
  3. ABRAXANE [Suspect]
     Active Substance: PACLITAXEL
  4. 5-FLUOROURACIL [Suspect]
     Active Substance: FLUOROURACIL

REACTIONS (3)
  - Bile duct obstruction [None]
  - Jaundice [None]
  - Hepatobiliary disease [None]

NARRATIVE: CASE EVENT DATE: 20170426
